FAERS Safety Report 24611800 (Version 2)
Quarter: 2025Q1

REPORT INFORMATION
  Report Type: Spontaneous
  Country: US (occurrence: US)
  Receive Date: 20241113
  Receipt Date: 20250220
  Transmission Date: 20250409
  Serious: No
  Sender: MANKIND PHARMA
  Company Number: US-MankindUS-000272

PATIENT
  Sex: Female

DRUGS (1)
  1. VARENICLINE TARTRATE [Suspect]
     Active Substance: VARENICLINE TARTRATE
     Indication: Smoking cessation therapy

REACTIONS (2)
  - Treatment noncompliance [Unknown]
  - Chest discomfort [Recovering/Resolving]
